FAERS Safety Report 4630214-7 (Version None)
Quarter: 2005Q2

REPORT INFORMATION
  Report Type: 
  Country: None (occurrence: None)
  Receive Date: 20050406
  Receipt Date: 20050318
  Transmission Date: 20051028
  Serious: Yes (Other)
  Sender: FDA-Public Use
  Company Number: FR_041004931

PATIENT
  Age: 54 Year
  Sex: Male

DRUGS (4)
  1. ZYPREXA [Suspect]
     Indication: BIPOLAR DISORDER
     Dosage: 7.5 MG DAY
     Dates: start: 20030701, end: 20041001
  2. DEPAKOTE [Concomitant]
  3. URBANYL(CLOBAZAM) [Concomitant]
  4. DEROXAT (PAROXETINE HYDROCHLORIDE) [Concomitant]

REACTIONS (1)
  - CYTOLYTIC HEPATITIS [None]
